FAERS Safety Report 8400017-6 (Version None)
Quarter: 2012Q2

REPORT INFORMATION
  Report Type: 
  Country: None (occurrence: None)
  Receive Date: 20120531
  Receipt Date: 20120523
  Transmission Date: 20120825
  Serious: Yes (Hospitalization)
  Sender: FDA-Public Use
  Company Number: GB-UCBSA-056957

PATIENT
  Sex: Female
  Weight: 94.1 kg

DRUGS (5)
  1. CIMZIA [Suspect]
     Indication: RHEUMATOID ARTHRITIS
     Dosage: FORTNIGHTLY
     Route: 058
     Dates: start: 20110501, end: 20120129
  2. CIMZIA [Suspect]
     Dosage: FORNIGHTLY
     Route: 058
     Dates: start: 20101026, end: 20110201
  3. HYDROXYCHLOROQUINE SULFATE [Concomitant]
     Route: 048
     Dates: start: 20100608
  4. DOXAZOSIN MESYLATE [Concomitant]
     Route: 048
  5. DICLOFENAC [Concomitant]
     Dosage: AS NEEDED (PRN)

REACTIONS (9)
  - MALAISE [None]
  - LYMPHOMA [None]
  - VARICELLA [None]
  - RASH [None]
  - LYMPHADENOPATHY [None]
  - PYREXIA [None]
  - DRUG INEFFECTIVE [None]
  - TUBERCULOSIS [None]
  - HYPERHIDROSIS [None]
